FAERS Safety Report 17260904 (Version 1)
Quarter: 2020Q1

REPORT INFORMATION
  Report Type: Spontaneous
  Country: DK (occurrence: DK)
  Receive Date: 20200113
  Receipt Date: 20200113
  Transmission Date: 20200409
  Serious: Yes (Other)
  Sender: FDA-Public Use
  Company Number: DK-009507513-2001DNK002515

PATIENT
  Age: 70 Year
  Sex: Female

DRUGS (10)
  1. PANTOPRAZOLE [Concomitant]
     Active Substance: PANTOPRAZOLE
     Indication: PROPHYLAXIS AGAINST GASTROINTESTINAL ULCER
     Dosage: 20 MILLIGRAM, QD
     Route: 048
     Dates: start: 20190426
  2. CODEINE [Concomitant]
     Active Substance: CODEINE
     Indication: COUGH
     Dosage: DOSE: 1 TABLET AS NECESSARY A MAXIMUM OF 4 TIMES DAILY
     Route: 048
     Dates: start: 20190613
  3. NOVORAPID [Concomitant]
     Active Substance: INSULIN ASPART
     Indication: TYPE 1 DIABETES MELLITUS
     Dosage: STRENGTH: 100 UNITS/ML. DOSE: 4 INTERNATIONAL UNITS (IE) MORNING, 3 IE MIDDAY, 4 IE EVENING
     Dates: start: 20140623
  4. CALCIUM (UNSPECIFIED) (+) VITAMIN D (UNSPECIFIED) [Concomitant]
     Active Substance: CALCIUM CARBONATE\VITAMIN D
     Indication: MINERAL SUPPLEMENTATION
     Dosage: 2 DOSAGE FORM, QD
     Route: 048
     Dates: start: 20190426
  5. LANTUS [Concomitant]
     Active Substance: INSULIN GLARGINE
     Indication: TYPE 1 DIABETES MELLITUS
     Dosage: STRENGTH: 100 UNITS/ML
     Dates: start: 20140623
  6. DOMPERIDONE [Concomitant]
     Active Substance: DOMPERIDONE
     Indication: ADVERSE DRUG REACTION
     Dosage: INDICATION: AGAINST ADVERSE DRUG REACTIONS TO CHEMOTHERAPY; DOSE: 1 TABLET AS NECESSARY A MAXIMUM OF
     Route: 048
     Dates: start: 20190606
  7. KEYTRUDA [Suspect]
     Active Substance: PEMBROLIZUMAB
     Indication: NON-SMALL CELL LUNG CANCER METASTATIC
     Dosage: IN NOV-2019, 7 SERIES WERE ADMINISTERED
     Route: 042
     Dates: start: 20190606
  8. AMITRIPTYLINE HYDROCHLORIDE. [Concomitant]
     Active Substance: AMITRIPTYLINE HYDROCHLORIDE
     Indication: ANXIETY
     Dosage: 75 MILLIGRAM, QD
     Route: 048
     Dates: start: 20160226
  9. IBUMETIN [Concomitant]
     Active Substance: IBUPROFEN
     Indication: PAIN
     Dosage: 1200 MG, QD
     Route: 048
     Dates: start: 20170509
  10. ACETAMINOPHEN. [Concomitant]
     Active Substance: ACETAMINOPHEN
     Indication: PAIN
     Dosage: DOSE: 1-2 TABLETS AS NECESSARY A MAXIMUM OF 4 TIMES DAILY
     Route: 048
     Dates: start: 20170405

REACTIONS (4)
  - Blood thyroid stimulating hormone increased [Not Recovered/Not Resolved]
  - Hypothyroidism [Not Recovered/Not Resolved]
  - Tri-iodothyronine decreased [Not Recovered/Not Resolved]
  - Thyroxine decreased [Not Recovered/Not Resolved]

NARRATIVE: CASE EVENT DATE: 201911
